FAERS Safety Report 10350847 (Version 1)
Quarter: 2014Q3

REPORT INFORMATION
  Report Type: Spontaneous
  Country: US (occurrence: US)
  Receive Date: 20140730
  Receipt Date: 20140730
  Transmission Date: 20150326
  Serious: No
  Sender: FDA-Public Use
  Company Number: US-PFIZER INC-2014209064

PATIENT
  Age: 88 Year
  Sex: Male
  Weight: 79.37 kg

DRUGS (5)
  1. CARDURA [Suspect]
     Active Substance: DOXAZOSIN MESYLATE
     Indication: HYPERTENSION
     Dosage: 4 MG, 1X/DAY
     Route: 048
     Dates: start: 201401
  2. AVODART [Suspect]
     Active Substance: DUTASTERIDE
     Indication: PROSTATOMEGALY
     Dosage: 0.5 MG, 1X/DAY
     Route: 048
  3. ASPIRIN. [Concomitant]
     Active Substance: ASPIRIN
     Dosage: 81 MG, ALTERNATE DAY
  4. CARDURA [Suspect]
     Active Substance: DOXAZOSIN MESYLATE
     Indication: POOR QUALITY SLEEP
  5. BENICAR [Suspect]
     Active Substance: OLMESARTAN MEDOXOMIL
     Indication: HYPERTENSION
     Dosage: 10 MG, AS NEEDED
     Route: 048

REACTIONS (2)
  - Inappropriate schedule of drug administration [Unknown]
  - Feeling hot [Unknown]

NARRATIVE: CASE EVENT DATE: 2014
